FAERS Safety Report 4967756-0 (Version None)
Quarter: 2006Q2

REPORT INFORMATION
  Report Type: 
  Country: None (occurrence: None)
  Receive Date: 20060410
  Receipt Date: 20060405
  Transmission Date: 20061013
  Serious: Yes (Disabling)
  Sender: FDA-Public Use
  Company Number: US-MERCK-0604USA00752

PATIENT
  Age: 70 Year
  Sex: Female

DRUGS (4)
  1. FOSAMAX [Suspect]
     Indication: OSTEOPOROSIS
     Route: 048
     Dates: start: 20060403
  2. AGGRENOX [Concomitant]
     Route: 065
  3. HYDROCHLOROTHIAZIDE AND TRIAMTERENE [Concomitant]
     Route: 065
  4. URSODIOL [Concomitant]
     Route: 065

REACTIONS (3)
  - ERYTHEMA [None]
  - PAIN [None]
  - PRURITUS [None]
